FAERS Safety Report 10067626 (Version 1)
Quarter: 2014Q2

REPORT INFORMATION
  Report Type: Spontaneous
  Country: US (occurrence: US)
  Receive Date: 20140409
  Receipt Date: 20140409
  Transmission Date: 20141212
  Serious: Yes (Death, Other)
  Sender: FDA-Public Use
  Company Number: US-ASTELLAS-2014US003618

PATIENT
  Sex: Male

DRUGS (1)
  1. XTANDI [Suspect]
     Indication: PROSTATE CANCER METASTATIC
     Dosage: UNK
     Route: 048

REACTIONS (6)
  - Death [Fatal]
  - Metastases to bone [Unknown]
  - Weight decreased [Unknown]
  - Decreased appetite [Unknown]
  - Oedema peripheral [Unknown]
  - Fatigue [Unknown]
